FAERS Safety Report 9849618 (Version 1)
Quarter: 2014Q1

REPORT INFORMATION
  Report Type: Spontaneous
  Country: US (occurrence: None)
  Receive Date: 20140127
  Receipt Date: 20140127
  Transmission Date: 20141002
  Serious: Yes (Death)
  Sender: FDA-Public Use
  Company Number: None

PATIENT
  Age: 11 Year
  Sex: Female

DRUGS (2)
  1. ADVAIR DISKUS [Suspect]
     Indication: COUGH
     Dosage: 1 PUFF  TWICE DAILY  INHALATION
     Route: 055
     Dates: start: 20071207, end: 20140126
  2. ADVAIR DISKUS [Suspect]
     Indication: ASTHMA
     Dosage: 1 PUFF  TWICE DAILY  INHALATION
     Route: 055
     Dates: start: 20071207, end: 20140126

REACTIONS (7)
  - Wheezing [None]
  - Flushing [None]
  - Panic attack [None]
  - Dyspnoea [None]
  - Loss of consciousness [None]
  - Cyanosis [None]
  - Product label issue [None]
